FAERS Safety Report 8771846 (Version 3)
Quarter: 2012Q4

REPORT INFORMATION
  Report Type: 
  Country: US (occurrence: US)
  Receive Date: 20120906
  Receipt Date: 20121019
  Transmission Date: 20130627
  Serious: Yes (Other)
  Sender: FDA-Public Use
  Company Number: US-JNJFOC-20120900863

PATIENT
  Age: 8 Year
  Sex: Male
  Weight: 24.49 kg

DRUGS (2)
  1. CHILDRENS BENADRYL ALLERGY CHERRY FLAVORED [Suspect]
     Indication: ACCIDENTAL EXPOSURE TO PRODUCT
     Dosage: half of the bottle
     Route: 048
  2. UNSPECIFIED INGREDIENT [Concomitant]
     Indication: PRODUCT USED FOR UNKNOWN INDICATION
     Route: 065

REACTIONS (3)
  - Lethargy [Recovered/Resolved]
  - Hypersomnia [Recovered/Resolved]
  - Accidental overdose [Recovered/Resolved]
